FAERS Safety Report 7598529-0 (Version None)
Quarter: 2011Q3

REPORT INFORMATION
  Report Type: 
  Country: None (occurrence: None)
  Receive Date: 20110708
  Receipt Date: 20110629
  Transmission Date: 20111222
  Serious: Yes (Hospitalization)
  Sender: FDA-Public Use
  Company Number: US-ELI_LILLY_AND_COMPANY-US201106008843

PATIENT
  Sex: Female
  Weight: 122.45 kg

DRUGS (12)
  1. ASPIRIN [Concomitant]
     Indication: PROPHYLAXIS
     Dosage: 81 MG, QD
     Route: 048
  2. LIPITOR [Concomitant]
     Indication: BLOOD CHOLESTEROL INCREASED
     Dosage: 20 MG, QD
     Route: 048
  3. ESTRADIOL [Concomitant]
     Indication: MENOPAUSAL SYMPTOMS
     Dosage: 1 MG, QD
     Route: 048
  4. SYNTHROID [Concomitant]
     Indication: THYROID DISORDER
     Dosage: 150 UG, QD
     Route: 048
  5. LOTREL [Concomitant]
     Indication: HYPERTENSION
     Dosage: UNK, QD
     Route: 048
  6. ACTOS [Concomitant]
     Indication: TYPE 2 DIABETES MELLITUS
     Dosage: 30 MG, QD
     Route: 048
  7. WELCHOL [Concomitant]
     Indication: TYPE 2 DIABETES MELLITUS
     Dosage: 1875 MG, QD
     Route: 048
  8. HYDROCHLOROTHIAZIDE [Concomitant]
     Indication: HYPERTENSION
     Dosage: 12.5 MG, QD
     Route: 048
  9. LOVAZA [Concomitant]
     Indication: BLOOD TRIGLYCERIDES INCREASED
     Dosage: 4 G, QD
     Route: 048
  10. BYETTA [Suspect]
     Indication: TYPE 2 DIABETES MELLITUS
     Dosage: 5 UG, BID
     Route: 058
     Dates: start: 20060101
  11. BYETTA [Suspect]
     Dosage: 10 UG, BID
     Route: 058
  12. METFORMIN HCL [Concomitant]
     Indication: TYPE 2 DIABETES MELLITUS
     Dosage: 1000 UG, BID
     Route: 048

REACTIONS (3)
  - HERNIA GANGRENOUS [None]
  - INFECTION [None]
  - NAUSEA [None]
